FAERS Safety Report 6094708-2 (Version None)
Quarter: 2009Q1

REPORT INFORMATION
  Report Type: 
  Country: None (occurrence: None)
  Receive Date: 20090226
  Receipt Date: 20090217
  Transmission Date: 20090719
  Serious: Yes (Other)
  Sender: FDA-Public Use
  Company Number: US-AMGEN-QUU334322

PATIENT
  Sex: Male

DRUGS (12)
  1. EPOGEN [Suspect]
     Indication: RENAL FAILURE CHRONIC
     Dates: start: 20070101, end: 20090217
  2. SENSIPAR [Suspect]
     Indication: HYPERPARATHYROIDISM SECONDARY
     Route: 065
  3. MINOXIDIL [Concomitant]
  4. NIFEDIPINE [Concomitant]
  5. RENAGEL [Concomitant]
  6. FOLIC ACID [Concomitant]
  7. VITAMIN B-12 [Concomitant]
  8. CLONIDINE [Concomitant]
  9. FOSRENOL [Concomitant]
  10. VITAMIN D [Concomitant]
  11. DOXAZOSIN MESYLATE [Concomitant]
  12. VASOTEC [Concomitant]

REACTIONS (1)
  - THERAPEUTIC RESPONSE DECREASED [None]
